FAERS Safety Report 10770285 (Version 1)
Quarter: 2015Q1

REPORT INFORMATION
  Report Type: Spontaneous
  Country: US (occurrence: None)
  Receive Date: 20150204
  Receipt Date: 20150204
  Transmission Date: 20150721
  Serious: Yes (Death)
  Sender: FDA-Public Use
  Company Number: 2729121

PATIENT
  Age: 53 Year
  Sex: Male

DRUGS (6)
  1. COCAINE [Suspect]
     Active Substance: COCAINE
     Dates: start: 2013, end: 2013
  2. QUININE [Suspect]
     Active Substance: QUININE
     Dates: start: 2013, end: 2013
  3. CODEINE [Suspect]
     Active Substance: CODEINE
     Route: 051
     Dates: start: 2013, end: 2013
  4. FLUOXETINE [Suspect]
     Active Substance: FLUOXETINE\FLUOXETINE HYDROCHLORIDE
     Dates: start: 2013, end: 2013
  5. HEROIN [Suspect]
     Active Substance: DIACETYLMORPHINE
     Dates: start: 2013, end: 2013
  6. DIAZEPAM. [Suspect]
     Active Substance: DIAZEPAM
     Route: 051
     Dates: start: 2013, end: 2013

REACTIONS (2)
  - Toxicity to various agents [None]
  - Drug abuse [None]

NARRATIVE: CASE EVENT DATE: 2013
